FAERS Safety Report 7345306-1 (Version None)
Quarter: 2011Q1

REPORT INFORMATION
  Report Type: 
  Country: None (occurrence: None)
  Receive Date: 20110310
  Receipt Date: 20110307
  Transmission Date: 20110831
  Serious: Yes (Other)
  Sender: FDA-Public Use
  Company Number: US-ABBOTT-11P-163-0709797-00

PATIENT
  Sex: Male

DRUGS (1)
  1. HUMIRA [Suspect]
     Indication: CROHN'S DISEASE
     Route: 058
     Dates: start: 20101101

REACTIONS (4)
  - HAEMOGLOBIN DECREASED [None]
  - INJECTION SITE SWELLING [None]
  - INJECTION SITE PAIN [None]
  - HAEMATOCRIT DECREASED [None]
